FAERS Safety Report 13885560 (Version 3)
Quarter: 2017Q3

REPORT INFORMATION
  Report Type: Spontaneous
  Country: US (occurrence: US)
  Receive Date: 20170821
  Receipt Date: 20170921
  Transmission Date: 20171127
  Serious: Yes (Hospitalization, Other)
  Sender: FDA-Public Use
  Company Number: US-PFIZER INC-2017356388

PATIENT
  Age: 86 Year
  Sex: Female
  Weight: 78.2 kg

DRUGS (9)
  1. LYRICA [Suspect]
     Active Substance: PREGABALIN
     Dosage: 150 MG, 2X/DAY (IN MORNING AND AT NIGHT)
     Route: 048
  2. COZAAR [Concomitant]
     Active Substance: LOSARTAN POTASSIUM
     Dosage: UNK
  3. LYRICA [Suspect]
     Active Substance: PREGABALIN
     Dosage: 175 MG, TWICE A DAY (IN MORNING AND AT NIGHT); 350 MG A DAY
     Dates: end: 201708
  4. NORTRIPTYLINE [Concomitant]
     Active Substance: NORTRIPTYLINE
     Indication: SLEEP DISORDER
     Dosage: 10 MG, 1X/DAY
     Route: 048
  5. NORTRIPTYLINE [Concomitant]
     Active Substance: NORTRIPTYLINE
     Indication: PAIN IN EXTREMITY
     Dosage: 20 MG, 1X/DAY
     Route: 048
  6. PROZAC [Concomitant]
     Active Substance: FLUOXETINE HYDROCHLORIDE
     Indication: GASTROOESOPHAGEAL REFLUX DISEASE
     Dosage: UNK
  7. LIPITOR [Concomitant]
     Active Substance: ATORVASTATIN CALCIUM
     Dosage: UNK
  8. ALLOPURINOL. [Concomitant]
     Active Substance: ALLOPURINOL
     Dosage: UNK
  9. LYRICA [Suspect]
     Active Substance: PREGABALIN
     Indication: NEUROPATHY PERIPHERAL
     Dosage: 75 MG, 2X/DAY (IN MORNING AND AT NIGHT)
     Route: 048
     Dates: start: 1968

REACTIONS (16)
  - Impaired driving ability [Unknown]
  - Body height decreased [Not Recovered/Not Resolved]
  - Drug dose omission [Unknown]
  - Fatigue [Unknown]
  - Pneumonia [Recovering/Resolving]
  - Myocardial infarction [Recovered/Resolved]
  - Depressed level of consciousness [Unknown]
  - Weight decreased [Not Recovered/Not Resolved]
  - Renal failure [Recovering/Resolving]
  - Osteopenia [Unknown]
  - Lung disorder [Unknown]
  - Embolism [Unknown]
  - Lower limb fracture [Recovered/Resolved with Sequelae]
  - Cerebrovascular accident [Recovered/Resolved]
  - Decreased appetite [Unknown]
  - Limb discomfort [Unknown]

NARRATIVE: CASE EVENT DATE: 2016
